FAERS Safety Report 13296219 (Version 10)
Quarter: 2021Q2

REPORT INFORMATION
  Report Type: Spontaneous
  Country: FR (occurrence: FR)
  Receive Date: 20170304
  Receipt Date: 20210401
  Transmission Date: 20210716
  Serious: Yes (Death, Hospitalization, Other)
  Sender: FDA-Public Use
  Company Number: FR-AUROBINDO-AUR-APL-2017-30496

PATIENT
  Age: 71 Year
  Sex: Male
  Weight: 113.4 kg

DRUGS (51)
  1. LINEZOLIDE ARROW 600 MG FILM COATED TABLET [Suspect]
     Active Substance: LINEZOLID
     Indication: SKIN INFECTION
     Dosage: 2 DOSAGE FORM, ONCE A DAY
     Route: 048
     Dates: start: 20161222, end: 20170110
  2. RACECADOTRIL CAPSULE [Suspect]
     Active Substance: RACECADOTRIL
     Indication: CHEST SCAN
     Dosage: 1 DOSAGE FORM, 3 TIMES A DAY
     Route: 048
     Dates: start: 20161209, end: 20170119
  3. METOCLOPRAMIDE HYDROCHLORIDE. [Suspect]
     Active Substance: METOCLOPRAMIDE HYDROCHLORIDE
     Indication: SKIN INFECTION
     Dosage: 30 MILLIGRAM, ONCE A DAY
     Route: 048
  4. LOPERAMIDE [Concomitant]
     Active Substance: LOPERAMIDE
     Indication: PRODUCT USED FOR UNKNOWN INDICATION
     Dosage: UNK
     Route: 065
  5. PRIMPERAN [Suspect]
     Active Substance: METOCLOPRAMIDE HYDROCHLORIDE
     Indication: SKIN INFECTION
     Dosage: 3 DOSAGE FORM, 3 TIMES A DAY (3 DF, TID ( 1 DF TID))
     Route: 048
     Dates: start: 20161224, end: 20170119
  6. POLARAMINE [Concomitant]
     Active Substance: DEXCHLORPHENIRAMINE MALEATE
     Indication: PRODUCT USED FOR UNKNOWN INDICATION
     Dosage: UNK
     Route: 065
  7. POTASSIUM CHLORIDE. [Concomitant]
     Active Substance: POTASSIUM CHLORIDE
     Indication: PRODUCT USED FOR UNKNOWN INDICATION
     Dosage: UNK
     Route: 065
  8. RACECADOTRIL CAPSULE [Suspect]
     Active Substance: RACECADOTRIL
     Indication: SKIN INFECTION
     Dosage: 300 MILLIGRAM, ONCE A DAY (100 300 MILLIGRAM, 3 TIMES A DAY)
     Route: 048
     Dates: start: 20161209, end: 20170119
  9. TRAMADOL+PARACETAMOL FILM?COATED TABLET [Suspect]
     Active Substance: ACETAMINOPHEN\TRAMADOL
     Indication: SKIN INFECTION
  10. QUESTRAN [Suspect]
     Active Substance: CHOLESTYRAMINE
     Indication: SKIN INFECTION
     Dosage: 1 DOSAGE FORM, ONCE A DAY (4 GRAM)
     Route: 048
     Dates: start: 20161216, end: 20170119
  11. ULTRAVIST [Suspect]
     Active Substance: IOPROMIDE
     Indication: CHEST SCAN
  12. CUBICIN [Suspect]
     Active Substance: DAPTOMYCIN
     Indication: CHEST SCAN
     Dosage: 800 MILLIGRAM, ONCE A DAY
     Route: 042
     Dates: start: 20170110, end: 20170201
  13. CUBICIN [Suspect]
     Active Substance: DAPTOMYCIN
     Indication: SKIN INFECTION
  14. PIPERACILLIN AND TAZOBACTAM [Suspect]
     Active Substance: PIPERACILLIN SODIUM\TAZOBACTAM SODIUM
     Indication: CHEST SCAN
  15. COLESTYRAMINE [Suspect]
     Active Substance: CHOLESTYRAMINE
     Indication: CHEST SCAN
     Dosage: 1 DOSAGE FORM, ONCE A DAY
     Route: 048
     Dates: start: 20161216, end: 20170119
  16. VANCOMYCIN HYDROCHLORIDE. [Suspect]
     Active Substance: VANCOMYCIN HYDROCHLORIDE
     Indication: CHEST SCAN
     Dosage: UNK
     Route: 065
  17. NEFOPAM [Suspect]
     Active Substance: NEFOPAM
     Indication: SKIN INFECTION
  18. DIFFU K [Concomitant]
     Active Substance: POTASSIUM CHLORIDE
     Indication: PRODUCT USED FOR UNKNOWN INDICATION
     Dosage: UNK
     Route: 065
  19. INSULIN HUMAN [Concomitant]
     Active Substance: INSULIN HUMAN
     Indication: PRODUCT USED FOR UNKNOWN INDICATION
     Dosage: UNK
     Route: 065
  20. LINEZOLID FILM COATED TABLET [Suspect]
     Active Substance: LINEZOLID
     Indication: SKIN INFECTION
  21. LINEZOLIDE ARROW 600 MG FILM COATED TABLET [Suspect]
     Active Substance: LINEZOLID
     Indication: CHEST SCAN
     Dosage: 1200 MILLIGRAM, ONCE A DAY
     Route: 048
     Dates: start: 20161222, end: 20170110
  22. ULTRAVIST [Suspect]
     Active Substance: IOPROMIDE
     Indication: COMPUTERISED TOMOGRAM THORAX
     Dosage: 370 MILLIGRAM
     Route: 042
     Dates: start: 20170116, end: 20170116
  23. ULTRAVIST [Suspect]
     Active Substance: IOPROMIDE
     Indication: SKIN INFECTION
  24. RIFAMPICIN [Suspect]
     Active Substance: RIFAMPIN
     Indication: SKIN INFECTION
  25. NEFOPAM [Suspect]
     Active Substance: NEFOPAM
     Indication: CHEST SCAN
     Dosage: UNK
     Route: 042
     Dates: start: 20161202, end: 20170119
  26. UMULINE ZINC COMPOSE [Concomitant]
     Active Substance: INSULIN HUMAN
     Indication: PRODUCT USED FOR UNKNOWN INDICATION
     Dosage: INSULIN HUMAN ZINC SUSPENSION (AMORPHOUS) ()
     Route: 065
  27. LOPRAM [Concomitant]
     Indication: PRODUCT USED FOR UNKNOWN INDICATION
     Dosage: UNK
     Route: 065
  28. PANTOPRAZOL POWDER FOR SOLUTION FOR INJECTION [Suspect]
     Active Substance: PANTOPRAZOLE
     Indication: CHEST SCAN
     Dosage: UNK
     Route: 042
     Dates: start: 20161225, end: 20170119
  29. TRAMADOL+PARACETAMOL FILM?COATED TABLET [Suspect]
     Active Substance: ACETAMINOPHEN\TRAMADOL
     Indication: CHEST SCAN
     Dosage: 8 DOSAGE FORM, ONCE A DAY
     Route: 048
     Dates: start: 20161201, end: 20170119
  30. RIFADIN [Suspect]
     Active Substance: RIFAMPIN
     Indication: SKIN INFECTION
  31. PIPERACILLIN AND TAZOBACTAM [Suspect]
     Active Substance: PIPERACILLIN SODIUM\TAZOBACTAM SODIUM
     Indication: SKIN INFECTION
     Dosage: 3 DOSAGE FORM, ONCE A DAY
     Route: 042
     Dates: start: 20161204, end: 20170130
  32. VANCOMYCIN HYDROCHLORIDE. [Suspect]
     Active Substance: VANCOMYCIN HYDROCHLORIDE
     Indication: SKIN INFECTION
  33. RIFAMPICIN [Suspect]
     Active Substance: RIFAMPIN
     Indication: CHEST SCAN
     Dosage: UNK
     Route: 065
  34. FORMOTEROL [Suspect]
     Active Substance: FORMOTEROL
     Indication: PRODUCT USED FOR UNKNOWN INDICATION
     Dosage: 1 DOSAGE FORM
     Dates: start: 20161220, end: 20170119
  35. DUPHALAC [Concomitant]
     Active Substance: LACTULOSE
     Indication: PRODUCT USED FOR UNKNOWN INDICATION
     Dosage: UNK
     Route: 016
  36. PANTOPRAZOL POWDER FOR SOLUTION FOR INJECTION [Suspect]
     Active Substance: PANTOPRAZOLE
     Indication: SKIN INFECTION
  37. PRIMPERAN [Suspect]
     Active Substance: METOCLOPRAMIDE HYDROCHLORIDE
     Indication: CHEST SCAN
     Dosage: 30 MILLIGRAM, ONCE A DAY (10 MG, 3 TIMES A DAY)
     Route: 048
     Dates: start: 20161224, end: 20170119
  38. LOVENOX [Concomitant]
     Active Substance: ENOXAPARIN SODIUM
     Indication: PRODUCT USED FOR UNKNOWN INDICATION
     Dosage: 4000 INTERNATIONAL UNIT (4000 IU ANTI?XA / 0.4 ML,)
     Route: 065
     Dates: start: 20170114
  39. LANTUS [Concomitant]
     Active Substance: INSULIN GLARGINE
     Indication: PRODUCT USED FOR UNKNOWN INDICATION
     Dosage: UNK
     Route: 065
  40. BUDESONIDE. [Suspect]
     Active Substance: BUDESONIDE
     Indication: PRODUCT USED FOR UNKNOWN INDICATION
     Dosage: 1 DOSAGE FORM, ONCE A DAY
     Route: 055
     Dates: start: 20161220, end: 20170119
  41. QUESTRAN [Suspect]
     Active Substance: CHOLESTYRAMINE
     Indication: CHEST SCAN
     Dosage: 4 GRAM, ONCE A DAY
     Route: 048
     Dates: start: 20161216, end: 20170119
  42. SYMBICORT [Suspect]
     Active Substance: BUDESONIDE\FORMOTEROL FUMARATE DIHYDRATE
     Indication: PRODUCT USED FOR UNKNOWN INDICATION
     Dosage: 1 DOSAGE FORM, ONCE A DAY
     Dates: start: 20161220, end: 20170119
  43. COLESTYRAMINE [Suspect]
     Active Substance: CHOLESTYRAMINE
     Indication: SKIN INFECTION
  44. DAPTOMYCIN. [Suspect]
     Active Substance: DAPTOMYCIN
     Indication: CHEST SCAN
  45. LEVOFLOXACIN. [Concomitant]
     Active Substance: LEVOFLOXACIN
     Indication: PRODUCT USED FOR UNKNOWN INDICATION
     Dosage: UNK
     Route: 065
  46. LINEZOLID FILM COATED TABLET [Suspect]
     Active Substance: LINEZOLID
     Indication: CHEST SCAN
     Dosage: 600 MILLIGRAM, TWO TIMES A DAY
     Route: 048
     Dates: start: 20161222, end: 20170110
  47. RIFADIN [Suspect]
     Active Substance: RIFAMPIN
     Indication: CHEST SCAN
     Dosage: UNK
     Route: 065
  48. METOCLOPRAMIDE HYDROCHLORIDE. [Suspect]
     Active Substance: METOCLOPRAMIDE HYDROCHLORIDE
     Indication: CHEST SCAN
  49. DAPTOMYCIN. [Suspect]
     Active Substance: DAPTOMYCIN
     Indication: SKIN INFECTION
     Dosage: 800 MILLIGRAM, ONCE A DAY
     Route: 042
     Dates: start: 20170110, end: 20170201
  50. KARDEGIC [Concomitant]
     Active Substance: ASPIRIN DL-LYSINE
     Indication: PRODUCT USED FOR UNKNOWN INDICATION
     Dosage: UNK
     Route: 065
  51. FUROSEMIDE. [Concomitant]
     Active Substance: FUROSEMIDE
     Indication: PRODUCT USED FOR UNKNOWN INDICATION
     Dosage: UNK
     Route: 065

REACTIONS (18)
  - Hepatic encephalopathy [Fatal]
  - Diffuse alveolar damage [Fatal]
  - Restlessness [Fatal]
  - Eosinophilic pneumonia [Fatal]
  - Glomerular filtration rate decreased [Fatal]
  - Hyperammonaemia [Fatal]
  - Pulmonary interstitial emphysema syndrome [Fatal]
  - Thrombocytopenia [Fatal]
  - Eosinophilia [Fatal]
  - Rash maculo-papular [Fatal]
  - Generalised oedema [Fatal]
  - Acute kidney injury [Fatal]
  - Sepsis [Fatal]
  - Rectal haemorrhage [Fatal]
  - Eczema [Fatal]
  - Alveolar lung disease [Fatal]
  - Dyspnoea [Fatal]
  - Death [Fatal]

NARRATIVE: CASE EVENT DATE: 20161227
